FAERS Safety Report 10749682 (Version 1)
Quarter: 2015Q1

REPORT INFORMATION
  Report Type: Spontaneous
  Country: US (occurrence: US)
  Receive Date: 20150129
  Receipt Date: 20150129
  Transmission Date: 20150721
  Serious: Yes (Death, Hospitalization, Other)
  Sender: FDA-Public Use
  Company Number: US-JNJFOC-20141216308

PATIENT
  Age: 60 Year
  Sex: Male

DRUGS (15)
  1. GABAPENTIN. [Concomitant]
     Active Substance: GABAPENTIN
     Route: 048
  2. ALLOPURINOL. [Concomitant]
     Active Substance: ALLOPURINOL
     Route: 048
  3. MORPHINE SULFATE. [Concomitant]
     Active Substance: MORPHINE SULFATE
     Dosage: 15MG. 1-2 TABS EVERY 4 HRS PRN
     Route: 048
  4. NORCO [Concomitant]
     Active Substance: ACETAMINOPHEN\HYDROCODONE BITARTRATE
     Indication: PAIN
     Dosage: 1-2 TABLETS EVER 4-6 HOURS ( AS NECESSARY)
     Route: 048
  5. ACICLOVIR [Concomitant]
     Active Substance: ACYCLOVIR
     Route: 048
  6. OXYCODONE HCL [Concomitant]
     Active Substance: OXYCODONE HYDROCHLORIDE
     Route: 048
  7. PRIMIDONE. [Concomitant]
     Active Substance: PRIMIDONE
     Dosage: 50MG, 0.5 TAB, QHS
  8. VITAMIN B COMPLEX [Concomitant]
     Active Substance: CYANOCOBALAMIN\DEXPANTHENOL\NIACINAMIDE\PYRIDOXINE HYDROCHLORIDE\RIBOFLAVIN 5^-PHOSPHATE SODIUM\THIAMINE HYDROCHLORIDE\VITAMIN B COMPLEX
  9. IMBRUVICA [Suspect]
     Active Substance: IBRUTINIB
     Indication: MANTLE CELL LYMPHOMA
     Route: 048
     Dates: start: 20140220, end: 201405
  10. VITAMIN B6 [Concomitant]
     Active Substance: PYRIDOXINE HYDROCHLORIDE
     Route: 048
  11. MEGESTROL ACETATE. [Concomitant]
     Active Substance: MEGESTROL ACETATE
  12. MULTIVITAMINS [Concomitant]
     Active Substance: VITAMINS
  13. IMBRUVICA [Suspect]
     Active Substance: IBRUTINIB
     Indication: MANTLE CELL LYMPHOMA
     Route: 048
     Dates: start: 20140101, end: 20140123
  14. LOPERAMIDE [Concomitant]
     Active Substance: LOPERAMIDE
     Indication: DIARRHOEA
     Dosage: 2 CAPSULES AT FIRST DIARRHOEAL MOVEMENT
     Route: 048
  15. OCEAN NASAL [Concomitant]
     Dosage: 0.65% AS DIRECTED

REACTIONS (21)
  - Hypophosphataemia [Unknown]
  - Constipation [Unknown]
  - Hypomagnesaemia [Unknown]
  - Weight decreased [Unknown]
  - Deep vein thrombosis [Unknown]
  - Metastases to pleura [Unknown]
  - Neuropathy peripheral [Unknown]
  - Anaemia [Unknown]
  - Rhinorrhoea [Unknown]
  - Pleural effusion [Unknown]
  - Diarrhoea [Unknown]
  - Weight increased [Unknown]
  - Cachexia [Unknown]
  - Hypokalaemia [Unknown]
  - Disease progression [Fatal]
  - Febrile neutropenia [Recovered/Resolved]
  - Tremor [Recovering/Resolving]
  - Blood lactate dehydrogenase increased [Unknown]
  - Oedema peripheral [Unknown]
  - Azotaemia [Unknown]
  - Thrombocytopenia [Recovered/Resolved]

NARRATIVE: CASE EVENT DATE: 20140108
